FAERS Safety Report 12657007 (Version 3)
Quarter: 2018Q3

REPORT INFORMATION
  Report Type: Spontaneous
  Country: US (occurrence: US)
  Receive Date: 20160816
  Receipt Date: 20180917
  Transmission Date: 20181010
  Serious: Yes (Hospitalization)
  Sender: FDA-Public Use
  Company Number: US-DSJP-DSU-2016-118192

PATIENT

DRUGS (3)
  1. BENICAR [Suspect]
     Active Substance: OLMESARTAN MEDOXOMIL
     Indication: HYPERTENSION
     Dosage: 20 MG, QD
     Route: 048
     Dates: start: 201302
  2. IRON                               /00023549/ [Suspect]
     Active Substance: IRON DEXTRAN
     Indication: IRON DEFICIENCY ANAEMIA
     Dosage: UNK, TID
     Route: 048
     Dates: start: 201409, end: 201501
  3. IRON                               /00023549/ [Suspect]
     Active Substance: IRON DEXTRAN
     Dosage: UNK, BID
     Route: 048
     Dates: start: 201409, end: 201501

REACTIONS (9)
  - Decreased appetite [Not Recovered/Not Resolved]
  - Sprue-like enteropathy [Recovered/Resolved]
  - Umbilical hernia [Unknown]
  - Faeces discoloured [Recovered/Resolved]
  - Haemorrhage [Recovered/Resolved]
  - Constipation [Recovering/Resolving]
  - Hypotension [Unknown]
  - Anxiety [Unknown]
  - Oesophageal polyp [Unknown]

NARRATIVE: CASE EVENT DATE: 2014
